FAERS Safety Report 6822280-5 (Version None)
Quarter: 2010Q3

REPORT INFORMATION
  Report Type: 
  Country: None (occurrence: None)
  Receive Date: 20100708
  Receipt Date: 20100625
  Transmission Date: 20110219
  Serious: Yes (Hospitalization)
  Sender: FDA-Public Use
  Company Number: US-ELI_LILLY_AND_COMPANY-US201006007262

PATIENT
  Sex: Female

DRUGS (15)
  1. FORTEO [Suspect]
     Indication: OSTEOPOROSIS
     Dosage: 20 UG, DAILY (1/D)
     Dates: end: 20050101
  2. FORTEO [Suspect]
     Dosage: 20 UG, DAILY (1/D)
  3. ASACOL [Concomitant]
     Indication: COLITIS
     Dosage: 400 MG, 3/D
  4. PREVACID [Concomitant]
  5. LEVICIN [Concomitant]
  6. CORTEF [Concomitant]
  7. LOMOTIL [Concomitant]
     Dosage: UNK, AS NEEDED
  8. PHENERGAN [Concomitant]
     Dosage: UNK, AS NEEDED
  9. FLAGYL [Concomitant]
  10. LIPITOR [Concomitant]
  11. CLARINEX [Concomitant]
  12. MULTI-VIT [Concomitant]
  13. TUMS [Concomitant]
  14. KLONOPIN [Concomitant]
  15. BONIVA [Concomitant]
     Dates: start: 20070101, end: 20090101

REACTIONS (15)
  - ADRENAL INSUFFICIENCY [None]
  - ANXIETY [None]
  - ASTHENIA [None]
  - BONE DENSITY DECREASED [None]
  - COLITIS MICROSCOPIC [None]
  - DENTAL CARIES [None]
  - DEPRESSION [None]
  - DIARRHOEA [None]
  - GAIT DISTURBANCE [None]
  - GINGIVAL RECESSION [None]
  - HERPES ZOSTER [None]
  - OFF LABEL USE [None]
  - PYREXIA [None]
  - SJOGREN'S SYNDROME [None]
  - VENOUS INJURY [None]
